FAERS Safety Report 11619595 (Version 2)
Quarter: 2015Q4

REPORT INFORMATION
  Report Type: Spontaneous
  Country: JP (occurrence: JP)
  Receive Date: 20151012
  Receipt Date: 20151015
  Transmission Date: 20160304
  Serious: Yes (Hospitalization, Other)
  Sender: FDA-Public Use
  Company Number: JP-SA-2015SA153354

PATIENT
  Age: 53 Year
  Sex: Male
  Weight: 61 kg

DRUGS (22)
  1. LEVOFOLINATE [Suspect]
     Active Substance: LEVOLEUCOVORIN CALCIUM
     Indication: PANCREATIC CARCINOMA
     Dosage: IV INFUSION
     Route: 065
     Dates: start: 20140701, end: 20140701
  2. LEVOFOLINATE [Suspect]
     Active Substance: LEVOLEUCOVORIN CALCIUM
     Indication: PANCREATIC CARCINOMA
     Dosage: IV INFUSION
     Route: 041
     Dates: start: 20140908, end: 20140908
  3. 5-FU [Concomitant]
     Active Substance: FLUOROURACIL
     Dosage: 4250 MG/BODY DAY 1-2
     Dates: start: 20140701, end: 20141216
  4. LEVOFOLINATE [Suspect]
     Active Substance: LEVOLEUCOVORIN CALCIUM
     Indication: PANCREATIC CARCINOMA
     Dosage: IV INFUSION
     Route: 041
     Dates: start: 20140722, end: 20140722
  5. LEVOFOLINATE [Suspect]
     Active Substance: LEVOLEUCOVORIN CALCIUM
     Indication: PANCREATIC CARCINOMA
     Dosage: IV INFUSION
     Route: 041
     Dates: start: 20140808, end: 20140808
  6. LEVOFOLINATE [Suspect]
     Active Substance: LEVOLEUCOVORIN CALCIUM
     Indication: PANCREATIC CARCINOMA
     Dosage: IV INFUSION
     Route: 041
     Dates: start: 20150822, end: 20150822
  7. LEVOFOLINATE [Suspect]
     Active Substance: LEVOLEUCOVORIN CALCIUM
     Indication: PANCREATIC CARCINOMA
     Dosage: IV INFUSION
     Route: 041
     Dates: start: 20140922, end: 20140922
  8. LEVOFOLINATE [Suspect]
     Active Substance: LEVOLEUCOVORIN CALCIUM
     Indication: PANCREATIC CARCINOMA
     Dosage: IV INFUSION
     Route: 041
     Dates: start: 20141022, end: 20141022
  9. ELPLAT [Suspect]
     Active Substance: OXALIPLATIN
     Indication: PANCREATIC CARCINOMA
     Route: 041
     Dates: start: 20140808, end: 20140808
  10. ELPLAT [Suspect]
     Active Substance: OXALIPLATIN
     Indication: PANCREATIC CARCINOMA
     Route: 041
     Dates: start: 20140822, end: 20140822
  11. ELPLAT [Suspect]
     Active Substance: OXALIPLATIN
     Indication: PANCREATIC CARCINOMA
     Route: 041
     Dates: start: 20140908, end: 20140908
  12. ELPLAT [Suspect]
     Active Substance: OXALIPLATIN
     Indication: PANCREATIC CARCINOMA
     Route: 041
     Dates: start: 20140922, end: 20140922
  13. ELPLAT [Suspect]
     Active Substance: OXALIPLATIN
     Indication: PANCREATIC CARCINOMA
     Route: 041
     Dates: start: 20141022, end: 20141022
  14. LEVOFOLINATE [Suspect]
     Active Substance: LEVOLEUCOVORIN CALCIUM
     Indication: PANCREATIC CARCINOMA
     Dosage: IV INFUSION
     Route: 041
     Dates: start: 20141216, end: 20141216
  15. ELPLAT [Suspect]
     Active Substance: OXALIPLATIN
     Indication: PANCREATIC CARCINOMA
     Route: 041
     Dates: start: 20140701, end: 20140701
  16. ELPLAT [Suspect]
     Active Substance: OXALIPLATIN
     Indication: PANCREATIC CARCINOMA
     Route: 041
     Dates: start: 20140722, end: 20140722
  17. CAMPTO [Suspect]
     Active Substance: IRINOTECAN
     Indication: PANCREATIC CARCINOMA
     Dosage: IV INFUSION:ROUTE
     Route: 041
     Dates: start: 20141216, end: 20141216
  18. LEVOFOLINATE [Suspect]
     Active Substance: LEVOLEUCOVORIN CALCIUM
     Indication: PANCREATIC CARCINOMA
     Dosage: IV INFUSION
     Route: 041
     Dates: start: 20141119, end: 20141119
  19. ELPLAT [Suspect]
     Active Substance: OXALIPLATIN
     Indication: PANCREATIC CARCINOMA
     Route: 041
     Dates: start: 20141006, end: 20141006
  20. CAMPTO [Suspect]
     Active Substance: IRINOTECAN
     Indication: PANCREATIC CARCINOMA
     Dosage: IV INFUSION:ROUTE
     Route: 065
     Dates: start: 20141119, end: 20141119
  21. LEVOFOLINATE [Suspect]
     Active Substance: LEVOLEUCOVORIN CALCIUM
     Indication: PANCREATIC CARCINOMA
     Dosage: IV INFUSION
     Route: 041
     Dates: start: 20141007, end: 20141007
  22. LEVOFOLINATE [Suspect]
     Active Substance: LEVOLEUCOVORIN CALCIUM
     Indication: PANCREATIC CARCINOMA
     Dosage: IV INFUSION
     Route: 041
     Dates: start: 20141105, end: 20141105

REACTIONS (13)
  - Biliary tract infection [Unknown]
  - Pyrexia [Recovered/Resolved]
  - Decreased appetite [Not Recovered/Not Resolved]
  - Haemoglobin decreased [Not Recovered/Not Resolved]
  - Blood bilirubin increased [Recovered/Resolved]
  - Vomiting [Not Recovered/Not Resolved]
  - Neutrophil count decreased [Recovered/Resolved]
  - Peripheral sensory neuropathy [Not Recovered/Not Resolved]
  - Diarrhoea [Recovered/Resolved]
  - Fatigue [Not Recovered/Not Resolved]
  - Duodenal stenosis [Unknown]
  - White blood cell count decreased [Recovered/Resolved]
  - Nausea [Not Recovered/Not Resolved]

NARRATIVE: CASE EVENT DATE: 20140707
